FAERS Safety Report 17952479 (Version 1)
Quarter: 2020Q2

REPORT INFORMATION
  Report Type: Spontaneous
  Country: US (occurrence: US)
  Receive Date: 20200626
  Receipt Date: 20200626
  Transmission Date: 20200714
  Serious: No
  Sender: FDA-Public Use
  Company Number: US-ELI_LILLY_AND_COMPANY-US202006009848

PATIENT
  Sex: Female

DRUGS (1)
  1. EMGALITY [Suspect]
     Active Substance: GALCANEZUMAB-GNLM
     Indication: HEADACHE
     Dosage: UNK UNK, UNKNOWN
     Route: 058
     Dates: start: 201912

REACTIONS (9)
  - Head discomfort [Unknown]
  - Weight fluctuation [Unknown]
  - Ill-defined disorder [Unknown]
  - Anorectal disorder [Unknown]
  - Memory impairment [Unknown]
  - Constipation [Unknown]
  - Dyspnoea [Unknown]
  - Injection site reaction [Recovered/Resolved]
  - Discharge [Unknown]
